FAERS Safety Report 19621482 (Version 1)
Quarter: 2021Q3

REPORT INFORMATION
  Report Type: Spontaneous
  Country: US (occurrence: US)
  Receive Date: 20210728
  Receipt Date: 20210728
  Transmission Date: 20211014
  Serious: Yes (Hospitalization)
  Sender: FDA-Public Use
  Company Number: None

PATIENT
  Age: 79 Year
  Sex: Male
  Weight: 99 kg

DRUGS (1)
  1. WARFARIN [Suspect]
     Active Substance: WARFARIN
     Indication: DEEP VEIN THROMBOSIS
     Route: 048
     Dates: start: 20201202, end: 20210419

REACTIONS (10)
  - Dysstasia [None]
  - Subdural haematoma [None]
  - International normalised ratio increased [None]
  - Asthenia [None]
  - Cerebral haematoma [None]
  - Gait disturbance [None]
  - Fall [None]
  - Mental status changes [None]
  - Cerebral mass effect [None]
  - Blood pressure increased [None]

NARRATIVE: CASE EVENT DATE: 20210419
